FAERS Safety Report 7835337-7 (Version None)
Quarter: 2011Q4

REPORT INFORMATION
  Report Type: 
  Country: None (occurrence: None)
  Receive Date: 20111024
  Receipt Date: 20111019
  Transmission Date: 20120403
  Serious: Yes (Death)
  Sender: FDA-Public Use
  Company Number: AU-ASTRAZENECA-2011SE58055

PATIENT
  Age: 88 Year
  Sex: Female

DRUGS (1)
  1. ARIMIDEX [Suspect]
     Route: 048
     Dates: start: 20100901, end: 20110501

REACTIONS (2)
  - PNEUMONIA [None]
  - NEOPLASM MALIGNANT [None]
